FAERS Safety Report 9030604 (Version 1)
Quarter: 2013Q1

REPORT INFORMATION
  Report Type: Spontaneous
  Country: US (occurrence: US)
  Receive Date: 20130123
  Receipt Date: 20130123
  Transmission Date: 20140127
  Serious: Yes (Hospitalization)
  Sender: FDA-Public Use
  Company Number: US-SANOFI-AVENTIS-2013SA002897

PATIENT
  Age: 77 Year
  Sex: Male

DRUGS (1)
  1. ALLEGRA [Suspect]
     Indication: RHINORRHOEA
     Route: 048
     Dates: start: 201301

REACTIONS (1)
  - Atrial fibrillation [Not Recovered/Not Resolved]
